FAERS Safety Report 17351652 (Version 1)
Quarter: 2020Q1

REPORT INFORMATION
  Report Type: Report from Study
  Country: US (occurrence: US)
  Receive Date: 20200130
  Receipt Date: 20200130
  Transmission Date: 20200409
  Serious: Yes (Hospitalization)
  Sender: FDA-Public Use
  Company Number: US-PFIZER INC-2020036820

PATIENT
  Age: 67 Year
  Sex: Male

DRUGS (16)
  1. 5-FLUOROURACIL [FLUOROURACIL SODIUM] [Suspect]
     Active Substance: FLUOROURACIL SODIUM
     Dosage: 900 MG, EVERY 2 WEEKS
     Route: 042
     Dates: start: 20170824, end: 20170824
  2. PRILOSEC [Concomitant]
     Active Substance: OMEPRAZOLE MAGNESIUM
     Dosage: UNK
     Dates: start: 20160805
  3. ZOFRAN [Concomitant]
     Active Substance: ONDANSETRON HYDROCHLORIDE
     Dosage: UNK
  4. COMPAZINE [PROCHLORPERAZINE EDISYLATE] [Concomitant]
     Active Substance: PROCHLORPERAZINE EDISYLATE
     Dosage: UNK
     Dates: start: 20170823
  5. ALDACTONE S [BUTIZIDE;SPIRONOLACTONE] [Concomitant]
     Dosage: UNK
     Dates: start: 20161221
  6. BBI 608 [Suspect]
     Active Substance: NAPABUCASIN
     Indication: RECTAL CANCER METASTATIC
     Dosage: 240 MG, 2X/DAY
     Route: 048
     Dates: start: 20170821
  7. EMLA [LIDOCAINE HYDROCHLORIDE;PRILOCAINE] [Concomitant]
     Dosage: UNK
     Dates: start: 20170823
  8. LASIX [Concomitant]
     Active Substance: FUROSEMIDE
     Dosage: UNK
     Dates: start: 20170520
  9. SODIUM CHLORIDE. [Concomitant]
     Active Substance: SODIUM CHLORIDE
     Dosage: UNK
     Dates: start: 20170823
  10. IRINOTECAN HCL [Suspect]
     Active Substance: IRINOTECAN HYDROCHLORIDE
     Indication: RECTAL CANCER METASTATIC
     Dosage: 403 MG, EVERY 2 WEEKS
     Route: 042
     Dates: start: 20170824, end: 20170824
  11. BBI 608 [Suspect]
     Active Substance: NAPABUCASIN
     Dosage: 240 MG, DAILY
     Dates: end: 20170903
  12. LEUCOVORIN [CALCIUM FOLINATE] [Concomitant]
     Active Substance: LEUCOVORIN
     Indication: RECTAL CANCER METASTATIC
     Dosage: 403 MG, EVERY 2 WEEKS
     Route: 042
     Dates: start: 20170824, end: 20170824
  13. HEPARIN [Concomitant]
     Active Substance: HEPARIN SODIUM
     Dosage: UNK
     Dates: start: 20170823
  14. LOVENOX [Concomitant]
     Active Substance: ENOXAPARIN SODIUM
     Dosage: UNK
     Dates: start: 20160915
  15. ATIVAN [Concomitant]
     Active Substance: LORAZEPAM
     Dosage: UNK
     Dates: start: 20170823
  16. 5-FLUOROURACIL [FLUOROURACIL SODIUM] [Suspect]
     Active Substance: FLUOROURACIL SODIUM
     Indication: RECTAL CANCER METASTATIC
     Dosage: 5400 MG, BOLUS EVERY 2 WEEKS
     Route: 040
     Dates: start: 20170824, end: 20170824

REACTIONS (2)
  - Anaemia [Recovered/Resolved]
  - Chest pain [Recovered/Resolved]

NARRATIVE: CASE EVENT DATE: 20170904
